FAERS Safety Report 9393961 (Version 1)
Quarter: 2013Q3

REPORT INFORMATION
  Report Type: Spontaneous
  Country: CA (occurrence: CA)
  Receive Date: 20130710
  Receipt Date: 20130710
  Transmission Date: 20140515
  Serious: Yes (Other)
  Sender: FDA-Public Use
  Company Number: CHPA2013CA010966

PATIENT
  Age: 75 Year
  Sex: Female

DRUGS (2)
  1. IBUPROFEN [Suspect]
     Indication: VENOUS THROMBOSIS LIMB
     Dosage: UNK, UNK
  2. WARFARIN [Concomitant]
     Indication: VENOUS THROMBOSIS
     Dosage: UNK, UNK

REACTIONS (1)
  - Venous thrombosis [Recovered/Resolved]
